FAERS Safety Report 20082382 (Version 1)
Quarter: 2021Q4

REPORT INFORMATION
  Report Type: Spontaneous
  Country: JP (occurrence: None)
  Receive Date: 20211117
  Receipt Date: 20211117
  Transmission Date: 20220303
  Serious: Yes (Hospitalization)
  Sender: FDA-Public Use
  Company Number: 2021A805273

PATIENT
  Sex: Female

DRUGS (2)
  1. LYNPARZA [Suspect]
     Active Substance: OLAPARIB
     Indication: Ovarian cancer
     Dosage: DOSE UNKNOWN
     Route: 048
  2. CORONAVIRUS(SARS-COV-2) VACCINE(RECOMBINANT CHIMPANZEE ADENOVIRUS V... [Concomitant]
     Dosage: DOSE UNKNOWN
     Route: 030

REACTIONS (1)
  - Interstitial lung disease [Not Recovered/Not Resolved]
